FAERS Safety Report 5709733-8 (Version None)
Quarter: 2008Q2

REPORT INFORMATION
  Report Type: 
  Country: None (occurrence: None)
  Receive Date: 20080418
  Receipt Date: 20070823
  Transmission Date: 20081010
  Serious: Yes (Other)
  Sender: FDA-Public Use
  Company Number: US-ASTRAZENECA-2007UW19463

PATIENT
  Age: 60 Year
  Sex: Male
  Weight: 70.8 kg

DRUGS (9)
  1. CASODEX [Suspect]
     Indication: PROSTATE CANCER
     Dates: start: 20070501
  2. CRESTOR [Concomitant]
     Route: 048
  3. EFFEXOR [Concomitant]
  4. COREG [Concomitant]
  5. PRILOSEC [Concomitant]
  6. DITROPAN [Concomitant]
  7. CLONAZEPAM [Concomitant]
  8. VITAMIN E [Concomitant]
  9. CALCIUM [Concomitant]

REACTIONS (2)
  - BLOOD GLUCOSE INCREASED [None]
  - FATIGUE [None]
